FAERS Safety Report 8164491-5 (Version None)
Quarter: 2012Q1

REPORT INFORMATION
  Report Type: 
  Country: None (occurrence: None)
  Receive Date: 20120224
  Receipt Date: 20120215
  Transmission Date: 20120608
  Serious: Yes (Hospitalization, Other)
  Sender: FDA-Public Use
  Company Number: US-ASTRAZENECA-2011SE70076

PATIENT
  Age: 13463 Day
  Sex: Female

DRUGS (6)
  1. TOPROL-XL [Suspect]
     Route: 048
  2. CLONIDINE [Concomitant]
  3. NORCO [Concomitant]
     Indication: PAIN
     Dosage: 10/325
  4. SYMBICORT [Suspect]
     Route: 055
  5. NEXIUM [Suspect]
     Route: 048
  6. NORVASC [Concomitant]

REACTIONS (5)
  - FOOT FRACTURE [None]
  - FALL [None]
  - LOWER LIMB FRACTURE [None]
  - ANKLE FRACTURE [None]
  - CONVULSION [None]
